FAERS Safety Report 8382637 (Version 2)
Quarter: 2012Q4

REPORT INFORMATION
  Report Type: 
  Country: US (occurrence: US)
  Receive Date: 20120201
  Receipt Date: 20120925
  Transmission Date: 20130627
  Serious: Yes (Death)
  Sender: FDA-Public Use
  Company Number: US-ROCHE-1035213

PATIENT
  Sex: Female

DRUGS (9)
  1. AVASTIN [Suspect]
     Indication: BREAST CANCER FEMALE
  2. SANDOSTATIN LAR [Concomitant]
  3. FASLODEX [Concomitant]
  4. CARBOPLATIN [Concomitant]
  5. TAXOTERE [Concomitant]
  6. DOXIL (UNITED STATES) [Concomitant]
  7. CYTOXAN [Concomitant]
  8. METHOTREXATE [Concomitant]
  9. 5-FLUOROURACIL [Concomitant]

REACTIONS (2)
  - Death [Fatal]
  - Disease progression [Unknown]
